FAERS Safety Report 7210822-X (Version None)
Quarter: 2011Q1

REPORT INFORMATION
  Report Type: 
  Country: None (occurrence: None)
  Receive Date: 20110105
  Receipt Date: 20101213
  Transmission Date: 20110831
  Serious: No
  Sender: FDA-Public Use
  Company Number: US-B.I. PHARMACEUTICALS,INC./RIDGEFIELD-2010-BP-14534BP

PATIENT
  Sex: Female

DRUGS (4)
  1. UNKNOWN CHOLESTEROL MEDICATION [Concomitant]
     Indication: BLOOD CHOLESTEROL INCREASED
  2. UNKNOWN ARTHRITIS MEDICATION [Concomitant]
     Indication: ARTHRITIS
  3. PRADAXA [Suspect]
     Indication: ATRIAL FIBRILLATION
     Dosage: 300 MG
     Route: 048
     Dates: start: 20101124, end: 20101208
  4. PRADAXA [Suspect]
     Dosage: 150 MG
     Route: 048
     Dates: start: 20101211, end: 20101211

REACTIONS (3)
  - NAUSEA [None]
  - WEIGHT DECREASED [None]
  - DIARRHOEA [None]
